FAERS Safety Report 18527360 (Version 2)
Quarter: 2020Q4

REPORT INFORMATION
  Report Type: Spontaneous
  Country: DE (occurrence: DE)
  Receive Date: 20201120
  Receipt Date: 20201210
  Transmission Date: 20210114
  Serious: No
  Sender: FDA-Public Use
  Company Number: DE-LUPIN PHARMACEUTICALS INC.-2020-07991

PATIENT
  Age: 28 Year
  Sex: Male

DRUGS (11)
  1. CARBAMAZEPINE. [Suspect]
     Active Substance: CARBAMAZEPINE
     Indication: MYOCLONUS
     Dosage: 1200 MILLIGRAM, QD
     Route: 048
  2. PRIMIDONE. [Suspect]
     Active Substance: PRIMIDONE
     Indication: MYOCLONUS
     Dosage: 1500 MILLIGRAM, QD
     Route: 048
  3. VALPROATE [Suspect]
     Active Substance: VALPROIC ACID
     Indication: MYOCLONUS
     Dosage: 4 GRAM, QD
     Route: 048
  4. BACLOFEN. [Suspect]
     Active Substance: BACLOFEN
     Indication: MYOCLONUS
     Dosage: 525 MICROGRAM, QD
     Route: 037
  5. CLONAZEPAM. [Suspect]
     Active Substance: CLONAZEPAM
     Indication: MYOCLONUS
  6. BACLOFEN. [Suspect]
     Active Substance: BACLOFEN
     Indication: MOVEMENT DISORDER
     Dosage: 40 MILLIGRAM, QD
     Route: 048
  7. PIRACETAM [Suspect]
     Active Substance: PIRACETAM
     Indication: MYOCLONUS
     Dosage: 30 GRAM, QD
     Route: 048
  8. FENTANYL. [Suspect]
     Active Substance: FENTANYL
     Indication: MOVEMENT DISORDER
     Dosage: 50 MICROGRAM, EVERY THREE DAY (PLASTER)
     Route: 065
  9. MORPHINE [Suspect]
     Active Substance: MORPHINE
     Indication: MOVEMENT DISORDER
     Dosage: UNK
     Route: 065
  10. LEVETIRACETAM. [Suspect]
     Active Substance: LEVETIRACETAM
     Indication: MYOCLONUS
     Dosage: 3 GRAM, QD
     Route: 048
  11. CLONAZEPAM. [Suspect]
     Active Substance: CLONAZEPAM
     Indication: MOVEMENT DISORDER
     Dosage: 4 MILLIGRAM, QD
     Route: 048

REACTIONS (2)
  - Off label use [Unknown]
  - Drug ineffective [Unknown]
